FAERS Safety Report 7859983-X (Version None)
Quarter: 2011Q4

REPORT INFORMATION
  Report Type: 
  Country: None (occurrence: None)
  Receive Date: 20111026
  Receipt Date: 20111026
  Transmission Date: 20120403
  Serious: Yes (Hospitalization)
  Sender: FDA-Public Use
  Company Number: None

PATIENT
  Sex: Female
  Weight: 108.18 kg

DRUGS (1)
  1. XOLAIR [Suspect]

REACTIONS (1)
  - CEREBRAL INFARCTION [None]
